FAERS Safety Report 8237382-9 (Version None)
Quarter: 2012Q1

REPORT INFORMATION
  Report Type: 
  Country: None (occurrence: None)
  Receive Date: 20120327
  Receipt Date: 20120323
  Transmission Date: 20120608
  Serious: Yes (Death, Hospitalization)
  Sender: FDA-Public Use
  Company Number: JP-BAYER-201013805BYL

PATIENT
  Age: 74 Year
  Sex: Male
  Weight: 58 kg

DRUGS (15)
  1. LASIX [Concomitant]
     Indication: ASCITES
     Dosage: SINCE BEFORE THE ADMINISTRATION OF NEXAVAR
     Route: 048
  2. KYTRIL [Concomitant]
     Indication: PREMEDICATION
     Dosage: DAILY DOSE 1 DF
     Route: 042
     Dates: start: 20100608, end: 20100608
  3. MIGLITOL [Concomitant]
     Dosage: SINCE BEFORE THE ADMINISTRATION OF NEXAVAR
     Route: 048
  4. URSO 250 [Concomitant]
     Dosage: SINCE BEFORE THE ADMINISTRATION OF NEXAVAR
     Route: 048
  5. MUCODYNE [Concomitant]
     Dosage: SINCE BEFORE THE ADMINISTRATION OF NEXAVAR
     Route: 048
  6. NEXAVAR [Suspect]
     Indication: HEPATIC NEOPLASM MALIGNANT
     Route: 048
     Dates: start: 20100217, end: 20100605
  7. LASIX [Concomitant]
     Dosage: 40 MG (DAILY DOSE), , ORAL
     Route: 048
     Dates: start: 20100630, end: 20100701
  8. ALDACTONE [Concomitant]
     Dosage: SINCE BEFORE THE ADMINISTRATION OF NEXAVAR
     Route: 048
  9. CISPLATIN [Concomitant]
     Dosage: DAILY DOSE 100 MG
     Route: 013
     Dates: start: 20100608, end: 20100608
  10. AMARYL [Concomitant]
     Dosage: SINCE BEFORE THE ADMINISTRATION OF NEXAVAR
     Route: 048
  11. MANNITOL [Concomitant]
     Indication: PREMEDICATION
     Dosage: DAILY DOSE 300 ML
     Route: 042
     Dates: start: 20100608, end: 20100608
  12. MUCOSTA [Concomitant]
     Dosage: SINCE BEFORE THE ADMINISTRATION OF NEXAVAR
     Route: 048
  13. RABEPRAZOLE SODIUM [Concomitant]
     Dosage: SINCE BEFORE THE ADMINISTRATION OF NEXAVAR
     Route: 048
  14. ETODOLAC [Concomitant]
     Dosage: SINCE BEFORE THE ADMINISTRATION OF NEXAVAR
     Route: 048
  15. ACTOS [Concomitant]
     Dosage: SINCE BEFORE THE ADMINISTRATION OF NEXAVAR
     Route: 048

REACTIONS (7)
  - PYREXIA [None]
  - HEPATIC FAILURE [None]
  - HEPATIC NEOPLASM MALIGNANT [None]
  - ASCITES [None]
  - OESOPHAGEAL VARICES HAEMORRHAGE [None]
  - DECREASED APPETITE [None]
  - DIARRHOEA [None]
